FAERS Safety Report 23410901 (Version 4)
Quarter: 2025Q1

REPORT INFORMATION
  Report Type: Spontaneous
  Country: US (occurrence: US)
  Receive Date: 20240117
  Receipt Date: 20250212
  Transmission Date: 20250408
  Serious: No
  Sender: BRISTOL-MYERS SQUIBB COMPANY
  Company Number: US-BRISTOL-MYERS SQUIBB COMPANY-2024-008519

PATIENT
  Age: 61 Year
  Sex: Female

DRUGS (3)
  1. ORENCIA [Suspect]
     Active Substance: ABATACEPT
     Indication: Rheumatoid arthritis
     Dosage: BATCH NUM: 1989719  EXP DATE: 28-FEB-2025
     Route: 058
     Dates: start: 202312
  2. ORENCIA [Suspect]
     Active Substance: ABATACEPT
     Dosage: BATCH NUM: 1989719  EXP DATE: 28-FEB-2025
     Route: 058
     Dates: start: 202312
  3. ORENCIA [Suspect]
     Active Substance: ABATACEPT
     Dosage: BATCH NUM: 1989719  EXP DATE: 28-FEB-2025
     Route: 058
     Dates: start: 202312

REACTIONS (7)
  - Joint swelling [Unknown]
  - Arthralgia [Unknown]
  - Pain [Unknown]
  - Drug ineffective [Unknown]
  - Fatigue [Unknown]
  - Chills [Unknown]
  - Cough [Unknown]
